FAERS Safety Report 6698797-3 (Version None)
Quarter: 2010Q2

REPORT INFORMATION
  Report Type: 
  Country: None (occurrence: None)
  Receive Date: 20100427
  Receipt Date: 20100419
  Transmission Date: 20101027
  Serious: Yes (Other)
  Sender: FDA-Public Use
  Company Number: PHHY2010BR25486

PATIENT
  Sex: Male

DRUGS (3)
  1. TEGRETOL [Suspect]
     Dosage: 5ML, UNK
     Route: 048
  2. TEGRETOL [Suspect]
     Dosage: 7ML, UNK
     Route: 048
  3. TEGRETOL [Suspect]
     Dosage: 2 %, TID
     Route: 048

REACTIONS (3)
  - APHASIA [None]
  - CONVULSION [None]
  - DRUG INEFFECTIVE [None]
